FAERS Safety Report 6541751-2 (Version None)
Quarter: 2010Q1

REPORT INFORMATION
  Report Type: 
  Country: None (occurrence: None)
  Receive Date: 20100119
  Receipt Date: 20081204
  Transmission Date: 20100710
  Serious: Yes (Hospitalization)
  Sender: FDA-Public Use
  Company Number: JP-PFIZER INC-2008084911

PATIENT
  Age: 61 Year
  Sex: Female
  Weight: 41 kg

DRUGS (21)
  1. FLUOROURACIL [Suspect]
     Indication: RECTAL CANCER
     Dosage: 420 MG, 1 EVERY 2 WEEKS
     Route: 040
     Dates: start: 20080630, end: 20080922
  2. FLUOROURACIL [Suspect]
     Dosage: 2550 MG, 1 EVERY 2 WEEKS
     Route: 041
     Dates: start: 20080630, end: 20080924
  3. *FOLINIC ACID [Suspect]
     Indication: RECTAL CANCER
     Dosage: 210 MG, 1 EVERY 2 WEEKS
     Route: 042
     Dates: start: 20080630, end: 20080922
  4. SUNITINIB MALATE [Suspect]
     Indication: RECTAL CANCER
     Route: 048
     Dates: start: 20080630, end: 20081001
  5. IRINOTECAN HCL [Suspect]
     Indication: RECTAL CANCER
     Dosage: 195 MG, 1 EVERY 2 WEEKS
     Route: 042
     Dates: start: 20080630, end: 20080922
  6. GRANISETRON HYDROCHLORIDE [Concomitant]
     Route: 042
     Dates: start: 20080630, end: 20080922
  7. DEXAMETHASONE SODIUM PHOSPHATE [Concomitant]
     Route: 042
     Dates: start: 20080630, end: 20080922
  8. LOXOPROFEN SODIUM [Concomitant]
     Route: 048
     Dates: end: 20081008
  9. REBAMIPIDE [Concomitant]
     Route: 048
     Dates: end: 20081008
  10. BROTIZOLAM [Concomitant]
     Route: 048
  11. ZOLPIDEM TARTRATE [Concomitant]
     Route: 048
  12. MAGNESIUM OXIDE [Concomitant]
     Route: 048
  13. STREPTOCOCCUS FAECALIS [Concomitant]
     Route: 048
     Dates: start: 20080714, end: 20081008
  14. TRIAMCINOLONE ACETONIDE [Concomitant]
     Dosage: UNK
     Route: 048
     Dates: start: 20080809
  15. TRIAMCINOLONE ACETONIDE [Concomitant]
     Dosage: UNK
     Dates: start: 20080901
  16. TRIAMCINOLONE ACETONIDE [Concomitant]
     Dosage: UNK
     Dates: start: 20080828, end: 20081008
  17. DIMETHYL ISOPROPYLAZULENE [Concomitant]
     Route: 048
     Dates: start: 20080901, end: 20081008
  18. PYRIDOXAL PHOSPHATE [Concomitant]
     Route: 048
     Dates: start: 20080828, end: 20081008
  19. LIDOCAINE [Concomitant]
     Route: 048
     Dates: start: 20080901
  20. BETAMETHASONE VALERATE [Concomitant]
     Route: 061
     Dates: start: 20080908, end: 20081008
  21. OXYCODONE HYDROCHLORIDE HYDRATE [Concomitant]
     Dosage: UNK
     Route: 048
     Dates: start: 20081008, end: 20081008

REACTIONS (1)
  - INTESTINAL OBSTRUCTION [None]
